FAERS Safety Report 13043056 (Version 2)
Quarter: 2016Q4

REPORT INFORMATION
  Report Type: Spontaneous
  Country: US (occurrence: US)
  Receive Date: 20161219
  Receipt Date: 20161229
  Transmission Date: 20170207
  Serious: No
  Sender: FDA-Public Use
  Company Number: US-GE HEALTHCARE MEDICAL DIAGNOSTICS-OMPQ-PR-1612S-2233

PATIENT

DRUGS (4)
  1. OMNIPAQUE [Suspect]
     Active Substance: IOHEXOL
     Indication: VOMITING
  2. OMNIPAQUE [Suspect]
     Active Substance: IOHEXOL
     Indication: SYNCOPE
  3. OMNIPAQUE [Suspect]
     Active Substance: IOHEXOL
     Indication: DIAGNOSTIC PROCEDURE
  4. OMNIPAQUE [Suspect]
     Active Substance: IOHEXOL
     Indication: NAUSEA
     Route: 065
     Dates: start: 20161129, end: 20161129

REACTIONS (2)
  - Urticaria [Unknown]
  - Nasal pruritus [Unknown]

NARRATIVE: CASE EVENT DATE: 20161129
